FAERS Safety Report 8581746 (Version 2)
Quarter: 2016Q1

REPORT INFORMATION
  Report Type: Spontaneous
  Country: FR (occurrence: FR)
  Receive Date: 20120528
  Receipt Date: 20160218
  Transmission Date: 20160526
  Serious: Yes (Death, Other)
  Sender: FDA-Public Use
  Company Number: FR-BRISTOL-MYERS SQUIBB COMPANY-16624595

PATIENT
  Sex: Female

DRUGS (3)
  1. BLEOMYCIN SULFATE [Suspect]
     Active Substance: BLEOMYCIN SULFATE
     Indication: OVARIAN GERM CELL CANCER
     Dosage: 1 DF, UNK
     Route: 065
  2. VEPESID [Suspect]
     Active Substance: ETOPOSIDE
     Indication: OVARIAN GERM CELL CANCER
     Dosage: UNK
     Route: 065
  3. BRIPLATIN [Suspect]
     Active Substance: CISPLATIN
     Indication: OVARIAN GERM CELL CANCER
     Dosage: 1 DF, UNK
     Route: 065

REACTIONS (3)
  - Pulmonary embolism [Fatal]
  - Maternal exposure during pregnancy [Recovered/Resolved]
  - Caesarean section [Unknown]
